FAERS Safety Report 8730258 (Version 2)
Quarter: 2012Q4

REPORT INFORMATION
  Report Type: Report from Study
  Country: FR (occurrence: NL)
  Receive Date: 20120817
  Receipt Date: 20121126
  Transmission Date: 20130627
  Serious: Yes (Hospitalization, Other)
  Sender: FDA-Public Use
  Company Number: FR-MYLANLABS-2006S1011245

PATIENT
  Age: 7 Year
  Sex: Male
  Weight: 8.7 kg

DRUGS (17)
  1. MERCAPTAMINE [Suspect]
     Indication: CYSTINOSIS
     Route: 048
     Dates: start: 1998
  2. MERCAPTAMINE [Suspect]
     Indication: CYSTINOSIS
     Route: 048
  3. MERCAPTAMINE [Suspect]
     Indication: CYSTINOSIS
     Route: 048
  4. MERCAPTAMINE [Suspect]
     Indication: CYSTINOSIS
     Route: 048
  5. MERCAPTAMINE [Suspect]
     Indication: CYSTINOSIS
     Route: 048
  6. MERCAPTAMINE [Suspect]
     Indication: CYSTINOSIS
     Route: 048
  7. PROGRAFT [Concomitant]
     Indication: IMMUNOSUPPRESSANT DRUG THERAPY
     Dates: start: 2007
  8. PREDNISONE [Concomitant]
     Indication: IMMUNOSUPPRESSANT DRUG THERAPY
     Dates: start: 2007
  9. CELLCEPT /01275102/ [Concomitant]
     Indication: IMMUNOSUPPRESSANT DRUG THERAPY
     Dates: start: 2007
  10. AMLODIPINE [Concomitant]
     Indication: HYPERTENSION
     Dates: start: 2007
  11. COLOFAC /00139402/ [Concomitant]
     Dates: start: 2007
  12. LABETALOL [Concomitant]
     Indication: HYPERTENSION
     Dates: start: 2007
  13. THYREX [Concomitant]
     Dates: start: 2007
  14. ALPHACALCIDOL [Concomitant]
     Indication: VITAMIN SUPPLEMENTATION
  15. GENOTROPIN [Concomitant]
     Indication: BLOOD GROWTH HORMONE
     Dates: start: 2007
  16. VENTOLIN [Concomitant]
     Indication: ASTHMA
  17. FLIXOTIDE [Concomitant]
     Indication: ASTHMA

REACTIONS (8)
  - Renal impairment [Unknown]
  - Headache [Not Recovered/Not Resolved]
  - Hypersensitivity [Recovered/Resolved]
  - Vomiting [Recovered/Resolved]
  - Dizziness [Recovered/Resolved]
  - Lupus nephritis [Not Recovered/Not Resolved]
  - Blood creatinine increased [Not Recovered/Not Resolved]
  - Proteinuria [Not Recovered/Not Resolved]
